FAERS Safety Report 4544954-1 (Version None)
Quarter: 2004Q4

REPORT INFORMATION
  Report Type: 
  Country: None (occurrence: None)
  Receive Date: 20041230
  Receipt Date: 20041220
  Transmission Date: 20050328
  Serious: Yes (Other)
  Sender: FDA-Public Use
  Company Number: S04-USA-06678-01

PATIENT
  Age: 15 Year
  Sex: Female

DRUGS (13)
  1. LEXAPRO [Suspect]
     Indication: ANXIETY
     Dosage: 20 MG QD PO
     Route: 048
  2. LEXAPRO [Suspect]
     Indication: DEPRESSION
     Dosage: 20 MG QD PO
     Route: 048
  3. LEXAPRO [Suspect]
     Indication: ANXIETY
     Dosage: 15 MG QD PO
     Route: 048
     Dates: start: 20040501, end: 20040709
  4. LEXAPRO [Suspect]
     Indication: DEPRESSION
     Dosage: 15 MG QD PO
     Route: 048
     Dates: start: 20040501, end: 20040709
  5. LEXAPRO [Suspect]
     Indication: ANXIETY
     Dosage: 10 MG QD PO
     Route: 048
     Dates: start: 20040729
  6. LEXAPRO [Suspect]
     Indication: DEPRESSION
     Dosage: 10 MG QD PO
     Route: 048
     Dates: start: 20040729
  7. LEXAPRO [Suspect]
     Indication: ANXIETY
     Dosage: 5 MG QD PO
     Route: 048
     Dates: start: 20031109
  8. LEXAPRO [Suspect]
     Indication: DEPRESSION
     Dosage: 5 MG QD PO
     Route: 048
     Dates: start: 20031109
  9. MINOCYCLINE HCL [Concomitant]
  10. DICYCLOMINE [Concomitant]
  11. CLARINEX [Concomitant]
  12. PRILOSEC [Concomitant]
  13. EFFEXOR XR [Concomitant]

REACTIONS (8)
  - ADVERSE DRUG REACTION [None]
  - ATTENTION DEFICIT/HYPERACTIVITY DISORDER [None]
  - AUTOIMMUNE THYROIDITIS [None]
  - DEPRESSION [None]
  - DISEASE RECURRENCE [None]
  - DRUG EFFECT DECREASED [None]
  - OVULATION PAIN [None]
  - PHARYNGOLARYNGEAL PAIN [None]
